FAERS Safety Report 16345255 (Version 1)
Quarter: 2019Q2

REPORT INFORMATION
  Report Type: Spontaneous
  Country: US (occurrence: US)
  Receive Date: 20190523
  Receipt Date: 20190523
  Transmission Date: 20190711
  Serious: No
  Sender: FDA-Public Use
  Company Number: US-ROCHE-2301581

PATIENT
  Age: 29 Year
  Sex: Female

DRUGS (1)
  1. XOFLUZA [Suspect]
     Active Substance: BALOXAVIR MARBOXIL
     Indication: INFLUENZA
     Dosage: ONE TIME DOSE
     Route: 065
     Dates: start: 20190331, end: 20190331

REACTIONS (1)
  - Glossitis [Recovered/Resolved]

NARRATIVE: CASE EVENT DATE: 20190331
